FAERS Safety Report 4596968-3 (Version None)
Quarter: 2005Q1

REPORT INFORMATION
  Report Type: 
  Country: None (occurrence: None)
  Receive Date: 20050302
  Receipt Date: 20040615
  Transmission Date: 20050727
  Serious: Yes (Hospitalization)
  Sender: FDA-Public Use
  Company Number: US-ABBOTT-04P-163-0264232-00

PATIENT
  Sex: Male

DRUGS (9)
  1. RITONAVIR SOFT GELATIN CAPSULES [Suspect]
     Indication: HIV INFECTION
     Route: 048
     Dates: start: 20030701, end: 20040608
  2. RITONAVIR SOFT GELATIN CAPSULES [Suspect]
     Route: 048
     Dates: start: 20050208, end: 20050215
  3. TIPRANAVIR [Concomitant]
     Indication: HIV INFECTION
     Route: 048
     Dates: start: 20030701, end: 20040608
  4. TIPRANAVIR [Concomitant]
     Route: 048
     Dates: start: 20050208, end: 20050215
  5. LAMIVUDINE [Concomitant]
     Indication: HIV INFECTION
     Route: 048
     Dates: start: 20000512, end: 20030608
  6. HUMAN MIXTARD [Concomitant]
     Indication: DIABETES MELLITUS
     Route: 058
     Dates: start: 20040415
  7. TENOFOVIR [Concomitant]
     Indication: HIV INFECTION
     Route: 048
     Dates: start: 20030331, end: 20040608
  8. TENOFOVIR [Concomitant]
     Dates: start: 20050208, end: 20050215
  9. GLUCOPHAGE [Concomitant]
     Indication: DRUG USE FOR UNKNOWN INDICATION
     Route: 058
     Dates: start: 20040101, end: 20040608

REACTIONS (1)
  - RENAL TUBULAR NECROSIS [None]
